FAERS Safety Report 6818008-5 (Version None)
Quarter: 2010Q3

REPORT INFORMATION
  Report Type: 
  Country: None (occurrence: None)
  Receive Date: 20100706
  Receipt Date: 20100625
  Transmission Date: 20110219
  Serious: Yes (Hospitalization)
  Sender: FDA-Public Use
  Company Number: GXKR2010TN07141

PATIENT
  Age: 45 Year
  Sex: Male

DRUGS (1)
  1. CYCLOSPORINE [Suspect]
     Indication: BEHCET'S SYNDROME
     Route: 065

REACTIONS (1)
  - ENCEPHALITIS [None]
